FAERS Safety Report 12301404 (Version 1)
Quarter: 2016Q2

REPORT INFORMATION
  Report Type: Spontaneous
  Country: US (occurrence: US)
  Receive Date: 20160425
  Receipt Date: 20160425
  Transmission Date: 20160815
  Serious: Yes (Other)
  Sender: FDA-Public Use
  Company Number: US-LPDUSPRD-20160338

PATIENT
  Age: 39 Year
  Sex: Male

DRUGS (3)
  1. DEXAMETHASONE SODIUM PHOSPHATE INJECTION, USP (4901-25) [Suspect]
     Active Substance: DEXAMETHASONE SODIUM PHOSPHATE
     Dosage: DOSE NOT PROVIDED
     Route: 065
  2. GEMCITABINE [Suspect]
     Active Substance: GEMCITABINE\GEMCITABINE HYDROCHLORIDE
     Dosage: DOSE NOT PROVIDED
     Route: 065
  3. PLATINUM [Suspect]
     Active Substance: PLATINUM
     Dosage: DOSE NOT PROVIDED
     Route: 065

REACTIONS (1)
  - Vanishing bile duct syndrome [Unknown]
